FAERS Safety Report 12155612 (Version 2)
Quarter: 2016Q1

REPORT INFORMATION
  Report Type: Spontaneous
  Country: BR (occurrence: BR)
  Receive Date: 20160307
  Receipt Date: 20160322
  Transmission Date: 20160526
  Serious: Yes (Hospitalization)
  Sender: FDA-Public Use
  Company Number: BR-SA-2016SA038155

PATIENT
  Age: 44 Year
  Sex: Female
  Weight: 57 kg

DRUGS (6)
  1. TACROLIMUS. [Concomitant]
     Active Substance: TACROLIMUS
     Indication: PROPHYLAXIS AGAINST TRANSPLANT REJECTION
     Dosage: EVERY 12 HOURS
     Route: 048
     Dates: start: 2002
  2. AUTOPEN 24 [Suspect]
     Active Substance: DEVICE
     Indication: DEVICE THERAPY
     Route: 058
     Dates: start: 2008, end: 20160202
  3. HUMALOG [Concomitant]
     Active Substance: INSULIN LISPRO
     Indication: BLOOD GLUCOSE ABNORMAL
     Dosage: 2 TO 3 TIMES PER DAY
     Route: 058
     Dates: start: 2008
  4. MYFORTIC [Concomitant]
     Active Substance: MYCOPHENOLATE SODIUM
     Indication: PROPHYLAXIS AGAINST TRANSPLANT REJECTION
     Dosage: EVERY 12 HOURS
     Route: 048
     Dates: start: 2002
  5. LANTUS [Suspect]
     Active Substance: INSULIN GLARGINE
     Indication: TYPE 1 DIABETES MELLITUS
     Route: 058
     Dates: start: 2008
  6. CORTICORTEN [Concomitant]
     Indication: PROPHYLAXIS AGAINST TRANSPLANT REJECTION
     Dosage: EVERY 12 HOURS
     Route: 048
     Dates: start: 2002

REACTIONS (4)
  - Weight decreased [Recovered/Resolved]
  - Hyperglycaemia [Recovered/Resolved]
  - Fatigue [Recovered/Resolved]
  - Urine output increased [Recovered/Resolved]

NARRATIVE: CASE EVENT DATE: 20160202
